FAERS Safety Report 8507019 (Version 2)
Quarter: 2013Q1

REPORT INFORMATION
  Report Type: Spontaneous
  Country: US (occurrence: US)
  Receive Date: 20120412
  Receipt Date: 20130227
  Transmission Date: 20140127
  Serious: No
  Sender: FDA-Public Use
  Company Number: US-ASTRAZENECA-2011SE70925

PATIENT
  Age: 49 Year
  Sex: Female

DRUGS (3)
  1. NEXIUM [Suspect]
     Route: 048
  2. SEROQUEL [Suspect]
     Indication: ANXIETY
     Route: 048
  3. SEROQUEL [Suspect]
     Indication: ANXIETY
     Route: 048

REACTIONS (5)
  - Feeling abnormal [Unknown]
  - Anxiety [Unknown]
  - Dyspepsia [Unknown]
  - Off label use [Unknown]
  - Drug dose omission [Unknown]
